FAERS Safety Report 19050906 (Version 1)
Quarter: 2021Q1

REPORT INFORMATION
  Report Type: Spontaneous
  Country: US (occurrence: US)
  Receive Date: 20210324
  Receipt Date: 20210324
  Transmission Date: 20210420
  Serious: No
  Sender: FDA-Public Use
  Company Number: None

PATIENT
  Age: 46 Year
  Sex: Female
  Weight: 90.45 kg

DRUGS (5)
  1. OZEMPIC [Suspect]
     Active Substance: SEMAGLUTIDE
     Indication: TYPE 2 DIABETES MELLITUS
     Dosage: ?          QUANTITY:1 INJECTION(S);OTHER FREQUENCY:ONCE WEEKLY;?
     Route: 058
     Dates: start: 20210114, end: 20210324
  2. IBUPROFEN. [Concomitant]
     Active Substance: IBUPROFEN
  3. DEXCOM G6 CGM [Concomitant]
     Active Substance: DEVICE
  4. TUMS [Concomitant]
     Active Substance: CALCIUM CARBONATE
  5. MEDTRONIC INSULIN PUMP [Concomitant]
     Active Substance: DEVICE

REACTIONS (2)
  - Drug hypersensitivity [None]
  - Pruritus [None]

NARRATIVE: CASE EVENT DATE: 20010324
